FAERS Safety Report 6193582-3 (Version None)
Quarter: 2009Q2

REPORT INFORMATION
  Report Type: 
  Country: None (occurrence: None)
  Receive Date: 20090514
  Receipt Date: 20090428
  Transmission Date: 20091009
  Serious: Yes (Life-Threatening, Hospitalization)
  Sender: FDA-Public Use
  Company Number: 8044386

PATIENT
  Age: 56 Year
  Sex: Female
  Weight: 77 kg

DRUGS (9)
  1. KEPPRA [Suspect]
     Indication: PARTIAL SEIZURES
     Dosage: 1000 MG 2/D PO
     Route: 048
     Dates: start: 20090201
  2. DEPRESSAN [Concomitant]
  3. DELMUNO [Concomitant]
  4. METFORMIN HCL [Concomitant]
  5. PANTOZOL /01263202/ [Concomitant]
  6. SIMVASTATIN [Concomitant]
  7. CLOPIDOGREL [Concomitant]
  8. METOPROLOL [Concomitant]
  9. ALLOPURINOL [Concomitant]

REACTIONS (8)
  - AFFECT LABILITY [None]
  - ANHEDONIA [None]
  - ANOREXIA [None]
  - ASTHENIA [None]
  - COGNITIVE DISORDER [None]
  - DECREASED INTEREST [None]
  - DEPRESSION [None]
  - SUICIDAL IDEATION [None]
